FAERS Safety Report 5532510-8 (Version None)
Quarter: 2007Q4

REPORT INFORMATION
  Report Type: 
  Country: None (occurrence: None)
  Receive Date: 20071203
  Receipt Date: 20071121
  Transmission Date: 20080405
  Serious: Yes (Other)
  Sender: FDA-Public Use
  Company Number: US-PFIZER INC-2007099208

PATIENT
  Sex: Female
  Weight: 56.7 kg

DRUGS (15)
  1. CHANTIX [Suspect]
     Indication: SMOKING CESSATION THERAPY
     Dates: start: 20071024, end: 20071116
  2. PREDNISONE TAB [Suspect]
  3. PHENOBARBITAL TAB [Concomitant]
  4. ACETYLSALICYLIC ACID SRT [Concomitant]
  5. OXYCODONE HCL [Concomitant]
  6. RELPAX [Concomitant]
  7. DIAZEPAM [Concomitant]
  8. LEXAPRO [Concomitant]
  9. MAGNESIUM SULFATE [Concomitant]
     Indication: MINERAL SUPPLEMENTATION
  10. PRILOSEC [Concomitant]
  11. ADVAIR DISKUS 100/50 [Concomitant]
  12. SPIRIVA [Concomitant]
  13. TRIAMCINOLONE [Concomitant]
  14. OXYGEN [Concomitant]
  15. ALBUTEROL [Concomitant]

REACTIONS (4)
  - CONVULSION [None]
  - FACIAL PALSY [None]
  - MIGRAINE [None]
  - SUICIDAL IDEATION [None]
